FAERS Safety Report 5744432-8 (Version None)
Quarter: 2008Q2

REPORT INFORMATION
  Report Type: 
  Country: None (occurrence: None)
  Receive Date: 20080520
  Receipt Date: 20080508
  Transmission Date: 20081010
  Serious: Yes (Other)
  Sender: FDA-Public Use
  Company Number: CA-ROCHE-563334

PATIENT
  Age: 62 Year
  Sex: Female

DRUGS (14)
  1. CELLCEPT [Suspect]
     Indication: DRUG USE FOR UNKNOWN INDICATION
     Route: 065
  2. EPREX [Suspect]
     Indication: DRUG USE FOR UNKNOWN INDICATION
     Route: 058
  3. AMLODIPINE [Concomitant]
  4. LIPITOR [Concomitant]
  5. AZATHIOPRINE [Concomitant]
  6. DOCUSATE [Concomitant]
     Dosage: DRUG REPORTED AS DOCUSATE SODIUM.
  7. FERROUS FUMARATE [Concomitant]
  8. FURSEMIDE [Concomitant]
  9. METOPROLOL TARTRATE [Concomitant]
  10. TRIMETHOPRIM [Concomitant]
  11. PREDNISONE TAB [Concomitant]
  12. INSULIN LISPRO [Concomitant]
  13. ASPIRIN [Concomitant]
  14. CALCIUM CARBONATE [Concomitant]

REACTIONS (2)
  - HAEMOLYSIS [None]
  - THERAPEUTIC RESPONSE DECREASED [None]
